FAERS Safety Report 7778818-7 (Version None)
Quarter: 2011Q3

REPORT INFORMATION
  Report Type: 
  Country: None (occurrence: None)
  Receive Date: 20110926
  Receipt Date: 20110920
  Transmission Date: 20111222
  Serious: Yes (Other)
  Sender: FDA-Public Use
  Company Number: US-BAYER-2011-035844

PATIENT
  Sex: Male

DRUGS (1)
  1. AVELOX [Suspect]
     Indication: RESPIRATORY TRACT INFECTION
     Dosage: 2 DF, QD
     Route: 048

REACTIONS (4)
  - TINNITUS [None]
  - SUICIDAL IDEATION [None]
  - RESTLESSNESS [None]
  - INSOMNIA [None]
